FAERS Safety Report 5359571-3 (Version None)
Quarter: 2007Q2

REPORT INFORMATION
  Report Type: 
  Country: None (occurrence: None)
  Receive Date: 20070615
  Receipt Date: 20070604
  Transmission Date: 20071010
  Serious: Yes (Death)
  Sender: FDA-Public Use
  Company Number: TR-PFIZER INC-2007047562

PATIENT
  Age: 37 Year
  Sex: Male
  Weight: 140 kg

DRUGS (6)
  1. PREGABALIN [Suspect]
     Indication: NEUROPATHY
     Route: 048
  2. ANTIHYPERTENSIVES [Concomitant]
  3. CANDESARTAN CILEXETIL [Concomitant]
  4. HYDROCHLOROTHIAZIDE [Concomitant]
  5. CHOLESTEROL- AND TRIGLYCERIDE REDUCERS [Concomitant]
  6. ANTI-DIABETICS [Concomitant]
     Route: 048

REACTIONS (1)
  - DEATH [None]
